FAERS Safety Report 10384934 (Version 1)
Quarter: 2014Q3

REPORT INFORMATION
  Report Type: Spontaneous
  Country: US (occurrence: None)
  Receive Date: 20140813
  Receipt Date: 20140813
  Transmission Date: 20150326
  Serious: Yes (Death)
  Sender: FDA-Public Use
  Company Number: 2014CT000110

PATIENT
  Sex: Male
  Weight: 109.6 kg

DRUGS (1)
  1. MIFEPRISTONE [Suspect]
     Active Substance: MIFEPRISTONE
     Indication: CUSHING^S SYNDROME
     Route: 048
     Dates: start: 20100217, end: 20100511

REACTIONS (2)
  - Pituitary cancer metastatic [None]
  - Secondary adrenocortical insufficiency [None]
